FAERS Safety Report 5847481-4 (Version None)
Quarter: 2008Q3

REPORT INFORMATION
  Report Type: 
  Country: None (occurrence: None)
  Receive Date: 20080814
  Receipt Date: 20080808
  Transmission Date: 20090109
  Serious: Yes (Hospitalization)
  Sender: FDA-Public Use
  Company Number: GXBR2008US01619

PATIENT
  Age: 53 Year
  Sex: Female
  Weight: 60.8 kg

DRUGS (3)
  1. ITRACONAZOLE [Suspect]
     Indication: FUNGAL SKIN INFECTION
     Dosage: 200 MG QD X 2 DAYS THEN 400MG QD X 8 DAYS, ORAL
     Route: 048
     Dates: start: 20080301, end: 20080301
  2. HORMONES (HORMONES0 [Concomitant]
  3. THYROID THERAPY (NO INGREDIENT/SUBSTANCES) [Concomitant]

REACTIONS (5)
  - ANAEMIA [None]
  - CHROMATURIA [None]
  - FATIGUE [None]
  - HEADACHE [None]
  - JAUNDICE [None]
